FAERS Safety Report 8425505-8 (Version None)
Quarter: 2012Q2

REPORT INFORMATION
  Report Type: 
  Country: None (occurrence: None)
  Receive Date: 20120611
  Receipt Date: 20120528
  Transmission Date: 20120825
  Serious: Yes (Hospitalization)
  Sender: FDA-Public Use
  Company Number: JP-UCBSA-015714

PATIENT
  Age: 73 Year
  Sex: Male

DRUGS (26)
  1. CIMZIA [Suspect]
     Route: 058
     Dates: start: 20100304
  2. CIMZIA [Suspect]
     Route: 058
     Dates: start: 20100722
  3. LANSOPRAZOLE [Concomitant]
     Dosage: DAILY DOSE : 30 MG
     Dates: start: 20100304
  4. IMIDAPRIL HYDROCHLORIDE [Concomitant]
     Dosage: DAILY DOSE  : 10 MG
     Dates: start: 20120202
  5. CANDESARTAN CILEXETIL W/AMLODIPINE BESILATE [Concomitant]
     Dosage: DAILY DOSE: 1 TAB
     Dates: start: 20110722
  6. LANSOPRAZOLE [Concomitant]
     Dosage: DAILY DOSE: 15 MG
     Dates: start: 20110429
  7. SODIUM RISEDRONATE HYDRATE [Concomitant]
     Dates: start: 20091225, end: 20110202
  8. MELOXICAM [Concomitant]
     Dosage: DAILY DOSE :10 MG
     Dates: start: 20110204
  9. EPLERENONE [Concomitant]
     Dosage: DAILY DOSE :50 MG
     Dates: start: 20111015
  10. LANSOPRAZOLE [Concomitant]
     Dosage: DAILY DOSE :15 MG
     Dates: start: 20091211, end: 20100304
  11. AMLODIPINE BESYLATE [Concomitant]
     Dosage: DAILY DOSE :5 MG
     Dates: start: 20090701, end: 20110721
  12. CANDESARTAN CILEXETIL [Concomitant]
     Dosage: DAILY DOSE :8 MG
     Dates: start: 20091224, end: 20110721
  13. SODIUM RISEDRONATE HYDRATE [Concomitant]
     Dates: start: 20110204
  14. MELOXICAM [Concomitant]
     Dosage: DAILY DOSE:10 MG
     Dates: start: 20020508, end: 20110202
  15. KETOPROFEN [Concomitant]
     Dosage: ADEQUATE DOSE AS NEEDED
     Dates: start: 20100610, end: 20100601
  16. FOLIC ACID [Concomitant]
     Dates: start: 20110726
  17. ITOPRIDE HYDROCHLORIDE [Concomitant]
     Dosage: DAILY DOSE: 150 MG
     Dates: start: 20100624
  18. CIMZIA [Suspect]
     Indication: RHEUMATOID ARTHRITIS
     Dosage: C87041
     Route: 058
     Dates: start: 20091112, end: 20100218
  19. METHOTREXATE [Concomitant]
     Dates: start: 20040901, end: 20100712
  20. DICLOFENAC SODIUM [Concomitant]
     Dosage: 25 MG AS NEEDED
     Dates: start: 20110804
  21. CROTAMITON [Concomitant]
     Dosage: ADEQUATE DOSE AS NEEDED
     Dates: start: 20111014
  22. CANDESARTAN CILEXETIL W/AMLODIPINE BESILATE [Concomitant]
     Dosage: DAILY DOSE: 1 TAB
     Dates: start: 20110722
  23. ITOPRIDE HYDROCHLORIDE [Concomitant]
     Dosage: DAILY DOSE :150 MG
     Dates: start: 20110429
  24. METHOTREXATE [Concomitant]
     Dates: start: 20110206
  25. AMLODIPINE BESYLATE [Concomitant]
     Dosage: DAILY DOSE :10 MG
     Dates: start: 20111208
  26. KETOPROFEN [Concomitant]
     Dosage: ADEQUATE DOSE AS NEEDED
     Dates: start: 20100625

REACTIONS (3)
  - BRONCHITIS [None]
  - FOOT DEFORMITY [None]
  - SPINAL COMPRESSION FRACTURE [None]
